FAERS Safety Report 23053199 (Version 2)
Quarter: 2023Q4

REPORT INFORMATION
  Report Type: Spontaneous
  Country: US (occurrence: US)
  Receive Date: 20231011
  Receipt Date: 20231103
  Transmission Date: 20240110
  Serious: No
  Sender: FDA-Public Use
  Company Number: US-HETERO-HET2023US02861

PATIENT
  Sex: Female

DRUGS (1)
  1. HIGH DENSITY POLYETHYLENE [Suspect]
     Active Substance: HIGH DENSITY POLYETHYLENE
     Indication: Constipation
     Dosage: UNK
     Route: 048

REACTIONS (1)
  - Drug ineffective [Unknown]
